FAERS Safety Report 16458404 (Version 2)
Quarter: 2019Q3

REPORT INFORMATION
  Report Type: Spontaneous
  Country: US (occurrence: US)
  Receive Date: 20190620
  Receipt Date: 20190925
  Transmission Date: 20191004
  Serious: No
  Sender: FDA-Public Use
  Company Number: US-THERAPEUTICSMD-2019TMD00910

PATIENT
  Age: 63 Year
  Sex: Female
  Weight: 51.7 kg

DRUGS (5)
  1. TYLENOL [Concomitant]
     Active Substance: ACETAMINOPHEN
     Dosage: UNK UNK, AS NEEDED
  2. LEVOTHYROXINE. [Concomitant]
     Active Substance: LEVOTHYROXINE
     Dosage: 44 ?G, 1X/DAY IN THE MORNING ON SATURDAY AND SUNDAY 1/2 HOUR BEFORE FOOD
  3. IMVEXXY [Suspect]
     Active Substance: ESTRADIOL
     Indication: ATROPHIC VULVOVAGINITIS
     Dosage: 10 ?G, 1X/WEEK BEFORE BED
     Route: 067
     Dates: start: 20190415, end: 20190421
  4. LEVOTHYROXINE. [Concomitant]
     Active Substance: LEVOTHYROXINE
     Dosage: 88 ?G, 1X/DAY IN THE MORNING MONDAY THROUGH FRIDAY 1/2 HOUR BEFORE FOOD
  5. ADVIL [Concomitant]
     Active Substance: IBUPROFEN
     Dosage: UNK UNK, AS NEEDED

REACTIONS (6)
  - Vulvovaginal discomfort [Recovered/Resolved]
  - Pollakiuria [Recovered/Resolved]
  - Reaction to excipient [Not Recovered/Not Resolved]
  - Product residue present [Recovered/Resolved]
  - Vulvovaginal rash [Recovered/Resolved]
  - Vulvovaginal burning sensation [Recovered/Resolved]

NARRATIVE: CASE EVENT DATE: 201904
